FAERS Safety Report 6872352-4 (Version None)
Quarter: 2010Q3

REPORT INFORMATION
  Report Type: 
  Country: None (occurrence: None)
  Receive Date: 20100723
  Receipt Date: 20080920
  Transmission Date: 20110219
  Serious: No
  Sender: FDA-Public Use
  Company Number: US-PFIZER INC-2008080800

PATIENT
  Sex: Male
  Weight: 84.09 kg

DRUGS (1)
  1. CHANTIX [Suspect]
     Indication: SMOKING CESSATION THERAPY
     Dates: start: 20080913

REACTIONS (5)
  - DIZZINESS [None]
  - DYSKINESIA [None]
  - EYELID FUNCTION DISORDER [None]
  - NAUSEA [None]
  - VOMITING [None]
